FAERS Safety Report 7991803-5 (Version None)
Quarter: 2011Q4

REPORT INFORMATION
  Report Type: 
  Country: None (occurrence: None)
  Receive Date: 20111219
  Receipt Date: 20111213
  Transmission Date: 20120403
  Serious: Yes (Hospitalization)
  Sender: FDA-Public Use
  Company Number: US-B.I. PHARMACEUTICALS,INC./RIDGEFIELD-2011-BP-28108BP

PATIENT
  Sex: Female

DRUGS (9)
  1. PRADAXA [Suspect]
     Indication: ATRIAL FIBRILLATION
     Dosage: 300 MG
     Dates: start: 20071201
  2. FISH OIL [Concomitant]
     Indication: MEDICAL DIET
  3. ALBUTEROL [Concomitant]
     Indication: CHRONIC OBSTRUCTIVE PULMONARY DISEASE
     Route: 055
  4. IPRATROPIUM BROMIDE [Concomitant]
     Indication: CHRONIC OBSTRUCTIVE PULMONARY DISEASE
     Route: 055
  5. VITAMIN [Concomitant]
     Indication: MEDICAL DIET
  6. MULTAQ [Concomitant]
     Indication: ATRIAL FIBRILLATION
     Dosage: 400 MG
     Route: 048
  7. BUDESONIDE [Concomitant]
     Indication: ASTHMA
     Route: 055
  8. PRISTIQ [Concomitant]
     Indication: DEPRESSION
     Dosage: 100 MG
     Route: 048
  9. LASIX [Concomitant]
     Indication: CARDIAC DISORDER
     Dosage: 20 MG
     Route: 048

REACTIONS (2)
  - CONTUSION [None]
  - SURGERY [None]
